FAERS Safety Report 5990010-5 (Version None)
Quarter: 2008Q4

REPORT INFORMATION
  Report Type: 
  Country: None (occurrence: None)
  Receive Date: 20081209
  Receipt Date: 20081209
  Transmission Date: 20090506
  Serious: Yes (Other)
  Sender: FDA-Public Use
  Company Number: None

PATIENT
  Age: 28 Year
  Sex: Male
  Weight: 90.7194 kg

DRUGS (2)
  1. PROPECIA [Suspect]
     Indication: HYPERSENSITIVITY
     Dosage: 2MG EVERY DAY
     Dates: start: 20070614, end: 20081114
  2. PROPECIA [Suspect]
     Indication: URTICARIA
     Dosage: 2MG EVERY DAY
     Dates: start: 20070614, end: 20081114

REACTIONS (3)
  - DRY SKIN [None]
  - NONSPECIFIC REACTION [None]
  - URTICARIA [None]
